FAERS Safety Report 7812950-4 (Version None)
Quarter: 2011Q4

REPORT INFORMATION
  Report Type: 
  Country: None (occurrence: None)
  Receive Date: 20111013
  Receipt Date: 20111004
  Transmission Date: 20120403
  Serious: Yes (Hospitalization)
  Sender: FDA-Public Use
  Company Number: BR-ASTRAZENECA-2011SE59805

PATIENT
  Age: 72 Year
  Sex: Female
  Weight: 80 kg

DRUGS (11)
  1. METOPROLOL SUCCINATE [Suspect]
     Route: 048
  2. PANTOPRAZOLE [Concomitant]
     Route: 048
  3. CRESTOR [Suspect]
     Route: 048
  4. INSULIN [Concomitant]
     Route: 048
  5. CLONAZEPAM [Concomitant]
     Route: 048
  6. DIMIPERIDE [Concomitant]
     Route: 048
  7. ATACAND [Suspect]
     Route: 048
  8. METFORMIN HYDROCHLORIDE [Concomitant]
     Route: 048
  9. BRILINTA [Suspect]
     Indication: VASCULAR STENT INSERTION
     Route: 048
  10. CITALOPRAM [Concomitant]
     Route: 048
  11. ASPIRIN [Concomitant]
     Route: 048

REACTIONS (2)
  - DYSPNOEA [None]
  - MYOCARDIAL ISCHAEMIA [None]
